FAERS Safety Report 4515445-9 (Version None)
Quarter: 2004Q4

REPORT INFORMATION
  Report Type: 
  Country: None (occurrence: None)
  Receive Date: 20041126
  Receipt Date: 20041111
  Transmission Date: 20050328
  Serious: Yes (Hospitalization)
  Sender: FDA-Public Use
  Company Number: 2004233479US

PATIENT
  Age: 63 Year
  Sex: Male
  Weight: 56.6996 kg

DRUGS (12)
  1. IRINOTECAN HCL [Suspect]
     Indication: SMALL CELL LUNG CANCER EXTENSIVE STAGE
     Dosage: 84 MG (50 MG/M*2, CYCLIC (D 1, D 8 EVERY 21 DAYS), INTRAVENOUS
     Route: 042
     Dates: start: 20040406, end: 20040709
  2. CARBOPLATIN [Suspect]
     Indication: SMALL CELL LUNG CANCER STAGE UNSPECIFIED
     Dates: start: 20040406, end: 20040709
  3. THEOPHYLLINE [Concomitant]
  4. GUAIFENESIN (GUAIFENESIN) [Concomitant]
  5. BECLOMETHASONE DIPROPIONATE [Concomitant]
  6. SALBUTAMOL (SALBUTAMOL) [Concomitant]
  7. IPARTROPIUM BROMIDE (IPARTROPIUM BROMIDE) [Concomitant]
  8. FLUTICASONE PROPIONATE [Concomitant]
  9. ONDANSETRON HYDROCHLORIDE (ONSANSETRON HYDROCHLORIDE) [Concomitant]
  10. DEXAMETHASONE [Concomitant]
  11. LORAZEPAM [Concomitant]
  12. FLUOXETINE HYDROCHLORIDE [Concomitant]

REACTIONS (3)
  - CHRONIC OBSTRUCTIVE AIRWAYS DISEASE EXACERBATED [None]
  - COUGH DECREASED [None]
  - RASH [None]
